FAERS Safety Report 6714872-9 (Version None)
Quarter: 2010Q2

REPORT INFORMATION
  Report Type: 
  Country: None (occurrence: None)
  Receive Date: 20100506
  Receipt Date: 20100506
  Transmission Date: 20101027
  Serious: Yes (Life-Threatening, Hospitalization, Other)
  Sender: FDA-Public Use
  Company Number: None

PATIENT
  Age: 40 Year
  Sex: Female
  Weight: 76.2043 kg

DRUGS (3)
  1. CHILDREN'S LIQUID BENEDRYL BRAND -NOT GENERIC- [Suspect]
     Indication: HYPERSENSITIVITY
     Dosage: AS DIRECTED PO
     Route: 048
     Dates: start: 20080428, end: 20080429
  2. CHILDREN'S LIQUID BENEDRYL BRAND -NOT GENERIC- [Suspect]
     Indication: SEDATION
     Dosage: AS DIRECTED PO
     Route: 048
     Dates: start: 20080428, end: 20080429
  3. THYROID TAB [Concomitant]

REACTIONS (13)
  - APNOEA [None]
  - AUTONOMIC NERVOUS SYSTEM IMBALANCE [None]
  - BALANCE DISORDER [None]
  - DELIRIUM [None]
  - HEART RATE IRREGULAR [None]
  - METABOLIC DISORDER [None]
  - NAUSEA [None]
  - NERVOUS SYSTEM DISORDER [None]
  - NEUROTOXICITY [None]
  - NYSTAGMUS [None]
  - TRANSIENT ISCHAEMIC ATTACK [None]
  - TREMOR [None]
  - VERTIGO [None]
